FAERS Safety Report 4693869-7 (Version None)
Quarter: 2005Q2

REPORT INFORMATION
  Report Type: 
  Country: None (occurrence: None)
  Receive Date: 20050615
  Receipt Date: 20050602
  Transmission Date: 20051028
  Serious: Yes (Other)
  Sender: FDA-Public Use
  Company Number: 2005083835

PATIENT
  Age: 66 Year
  Sex: Male
  Weight: 77.1115 kg

DRUGS (5)
  1. VIAGRA [Suspect]
     Indication: ERECTILE DYSFUNCTION
     Dosage: UNKNOWN (100 MG, UNKNOWN), ORAL
     Route: 048
     Dates: start: 20030101, end: 20040701
  2. DIGOXIN [Concomitant]
  3. COZAAR [Concomitant]
  4. NORVASC [Concomitant]
  5. WARFARIN SODIUM [Concomitant]

REACTIONS (1)
  - BLINDNESS UNILATERAL [None]
